FAERS Safety Report 17517956 (Version 1)
Quarter: 2020Q1

REPORT INFORMATION
  Report Type: Report from Study
  Country: CA (occurrence: CA)
  Receive Date: 20200309
  Receipt Date: 20200309
  Transmission Date: 20200409
  Serious: Yes (Other)
  Sender: FDA-Public Use
  Company Number: CA-GLAXOSMITHKLINE-CA2019AMR132497

PATIENT
  Sex: Female

DRUGS (4)
  1. MEPOLIZUMAB [Suspect]
     Active Substance: MEPOLIZUMAB
     Dosage: 100 MG, Z (MONTHLY)
     Route: 042
  2. MEPOLIZUMAB [Suspect]
     Active Substance: MEPOLIZUMAB
     Dosage: 100 MG, Z,MONTHLY
     Route: 042
  3. MEPOLIZUMAB [Suspect]
     Active Substance: MEPOLIZUMAB
     Indication: ASTHMA
     Dosage: 100 MG, Z, (1 MONTH)
     Route: 042
     Dates: start: 20180626
  4. MEPOLIZUMAB [Suspect]
     Active Substance: MEPOLIZUMAB
     Dosage: 100 MG, Z,MONTHLY
     Route: 042
     Dates: start: 20191015

REACTIONS (7)
  - Secretion discharge [Unknown]
  - Dyspnoea [Recovering/Resolving]
  - Productive cough [Unknown]
  - Loss of personal independence in daily activities [Unknown]
  - Pneumonia [Recovering/Resolving]
  - Lung disorder [Recovering/Resolving]
  - Nasal congestion [Unknown]
